FAERS Safety Report 20601715 (Version 3)
Quarter: 2022Q3

REPORT INFORMATION
  Report Type: Spontaneous
  Country: JP (occurrence: JP)
  Receive Date: 20220316
  Receipt Date: 20220715
  Transmission Date: 20221027
  Serious: No
  Sender: FDA-Public Use
  Company Number: JP-GLAXOSMITHKLINE-JP2022JPN044473

PATIENT

DRUGS (12)
  1. SOTROVIMAB [Suspect]
     Active Substance: SOTROVIMAB
     Indication: COVID-19
     Dosage: 500 MG, SINGLE
     Dates: start: 20220209
  2. VEKLURY [Suspect]
     Active Substance: REMDESIVIR
     Indication: COVID-19
     Dosage: 200 MG FOR THE FIRST DAY, 100 MG FOR THE SECOND AND THIRD DAY, DOSING NUMBER: 3
     Dates: start: 20220208, end: 20220210
  3. CARVEDILOL [Concomitant]
     Active Substance: CARVEDILOL
     Indication: Cardiac failure
     Dosage: 2.5 MG, QD, AFTER BREAKFAST
  4. CANDESARTAN OD TABLETS [Concomitant]
     Indication: Cardiac failure
     Dosage: 8 MG
  5. CANDESARTAN OD TABLETS [Concomitant]
     Dosage: 4 MG, QD,AFTER BREAKFAST
     Dates: start: 20211228
  6. PITAVASTATIN CALCIUM [Concomitant]
     Active Substance: PITAVASTATIN CALCIUM
     Indication: Hyperlipidaemia
     Dosage: 2 MG, QD, AFTER BREAKFAST
  7. MAGNESIUM OXIDE [Concomitant]
     Active Substance: MAGNESIUM OXIDE
     Indication: Constipation
     Dosage: 990 MG
  8. MAGNESIUM OXIDE [Concomitant]
     Active Substance: MAGNESIUM OXIDE
     Dosage: 660 MG, BID, AFTER BREAKFAST,  DINNER
     Dates: start: 20211229
  9. ACETAMINOPHEN [Concomitant]
     Active Substance: ACETAMINOPHEN
     Indication: Pyrexia
     Dosage: 400 MG, FOR FEVER OVER 38.5 DEGREES C, AFTER MEAL
     Dates: start: 20220208, end: 20220209
  10. PIRENOXINE [Concomitant]
     Active Substance: PIRENOXINE
     Dosage: UNK, TID, LEFT
  11. SODIUM PICOSULFATE [Concomitant]
     Active Substance: SODIUM PICOSULFATE
     Indication: Constipation
     Dosage: 10 DF, QD, ADJUST THE VOLUME ACCORDINGLY
  12. BENIDIPINE HYDROCHLORIDE [Concomitant]
     Active Substance: BENIDIPINE HYDROCHLORIDE
     Dosage: UNK

REACTIONS (2)
  - Aspartate aminotransferase increased [Recovered/Resolved]
  - Alanine aminotransferase increased [Recovered/Resolved]

NARRATIVE: CASE EVENT DATE: 20220210
